FAERS Safety Report 8699670 (Version 2)
Quarter: 2013Q3

REPORT INFORMATION
  Report Type: Spontaneous
  Country: US (occurrence: US)
  Receive Date: 20120802
  Receipt Date: 20130709
  Transmission Date: 20140515
  Serious: Yes (Other)
  Sender: FDA-Public Use
  Company Number: US-ASTRAZENECA-2012SE48278

PATIENT
  Age: 76 Year
  Sex: Male
  Weight: 81.6 kg

DRUGS (6)
  1. NEXIUM [Suspect]
     Indication: BARRETT^S OESOPHAGUS
     Route: 048
     Dates: start: 2003, end: 201212
  2. NEXIUM [Suspect]
     Indication: GASTROOESOPHAGEAL REFLUX DISEASE
     Route: 048
     Dates: start: 2003, end: 201212
  3. OMEPRAZOLE [Suspect]
     Indication: GASTROOESOPHAGEAL REFLUX DISEASE
     Route: 048
     Dates: start: 201305
  4. CELEBREX [Concomitant]
     Indication: BACK PAIN
  5. LIBRIUM [Concomitant]
     Indication: ANXIETY
  6. CARVODOPA/LEVODOPA [Concomitant]
     Indication: PARKINSON^S DISEASE

REACTIONS (8)
  - Prostate cancer [Unknown]
  - Lymphoma [Unknown]
  - Parkinson^s disease [Unknown]
  - Oral discomfort [Unknown]
  - Dry mouth [Unknown]
  - Dysgeusia [Unknown]
  - Off label use [Unknown]
  - Drug ineffective [Unknown]
